FAERS Safety Report 8835426 (Version 2)
Quarter: 2012Q4

REPORT INFORMATION
  Report Type: 
  Country: GB (occurrence: GB)
  Receive Date: 20121011
  Receipt Date: 20121023
  Transmission Date: 20130627
  Serious: Yes (Hospitalization, Other)
  Sender: FDA-Public Use
  Company Number: PHFR2012GB004183

PATIENT
  Age: 40 Year
  Sex: Male

DRUGS (3)
  1. CLOZARIL [Suspect]
     Indication: SCHIZOPHRENIA
     Dosage: 225 mg, UNK
     Route: 048
     Dates: start: 20010701
  2. LANSOPRAZOLE [Concomitant]
     Route: 048
  3. OLANZAPINE [Concomitant]

REACTIONS (10)
  - Vomiting [Unknown]
  - Alcohol abuse [Not Recovered/Not Resolved]
  - Blood bilirubin increased [Unknown]
  - Liver function test abnormal [Unknown]
  - Gamma-glutamyltransferase increased [Unknown]
  - Blood alkaline phosphatase increased [Unknown]
  - Alanine aminotransferase increased [Unknown]
  - Platelet count decreased [Unknown]
  - Schizophrenia, paranoid type [Not Recovered/Not Resolved]
  - Antipsychotic drug level increased [Unknown]
